FAERS Safety Report 6145775-9 (Version None)
Quarter: 2009Q2

REPORT INFORMATION
  Report Type: 
  Country: None (occurrence: None)
  Receive Date: 20090407
  Receipt Date: 20090327
  Transmission Date: 20091009
  Serious: Yes (Other)
  Sender: FDA-Public Use
  Company Number: CA-JNJFOC-20090400283

PATIENT
  Sex: Female
  Weight: 110 kg

DRUGS (1)
  1. REMICADE [Suspect]
     Indication: CROHN'S DISEASE
     Route: 042

REACTIONS (4)
  - ANXIETY [None]
  - CHEST PAIN [None]
  - LOSS OF CONSCIOUSNESS [None]
  - NIGHT SWEATS [None]
